FAERS Safety Report 24075835 (Version 1)
Quarter: 2024Q3

REPORT INFORMATION
  Report Type: Report from Study
  Country: US (occurrence: None)
  Receive Date: 20240710
  Receipt Date: 20240710
  Transmission Date: 20241017
  Serious: Yes (Disabling)
  Sender: ASTRAZENECA
  Company Number: 2024A152786

PATIENT
  Sex: Male

DRUGS (1)
  1. AIRSUPRA [Suspect]
     Active Substance: ALBUTEROL SULFATE\BUDESONIDE
     Route: 055

REACTIONS (4)
  - Disability [Unknown]
  - Reading disorder [Unknown]
  - Stress [Unknown]
  - Depression [Unknown]
